FAERS Safety Report 23793338 (Version 1)
Quarter: 2024Q2

REPORT INFORMATION
  Report Type: Spontaneous
  Country: GB (occurrence: GB)
  Receive Date: 20240429
  Receipt Date: 20240429
  Transmission Date: 20240716
  Serious: Yes (Other)
  Sender: FDA-Public Use
  Company Number: None

PATIENT
  Age: 80 Year
  Sex: Male
  Weight: 81 kg

DRUGS (18)
  1. AMITRIPTYLINE [Suspect]
     Active Substance: AMITRIPTYLINE
     Indication: Arthralgia
     Dosage: AT NIGHT
     Dates: start: 20240108, end: 20240311
  2. AMLODIPINE [Concomitant]
     Active Substance: AMLODIPINE BESYLATE
     Dates: start: 20200709
  3. ASPIRIN [Concomitant]
     Active Substance: ASPIRIN
     Dates: start: 20050112
  4. ATORVASTATIN [Concomitant]
     Active Substance: ATORVASTATIN
     Dates: start: 20200721
  5. BALNEUM [Concomitant]
     Dosage: MDU
     Dates: start: 20220921
  6. BETAMETHASONE VALERATE [Concomitant]
     Active Substance: BETAMETHASONE VALERATE
     Dosage: TWICE DAILY AS NEEDED
     Dates: start: 20101021
  7. BISOPROLOL [Concomitant]
     Active Substance: BISOPROLOL\BISOPROLOL FUMARATE
     Dates: start: 20180828
  8. CALCIPOTRIENE [Concomitant]
     Active Substance: CALCIPOTRIENE
     Dosage: APPLY TWICE DAILY WHEN REQUIRED
     Dates: start: 19991213
  9. CETIRIZINE [Concomitant]
     Active Substance: CETIRIZINE HYDROCHLORIDE
     Dates: start: 20100222
  10. COCODAMOL [Concomitant]
     Active Substance: ACETAMINOPHEN\CODEINE PHOSPHATE
     Dosage: TAKE 1 OR 2 TABLETS 4 TIMES/DAY
     Dates: start: 20230816
  11. FOLIC ACID [Concomitant]
     Active Substance: FOLIC ACID
     Dates: start: 20240119
  12. NITROGLYCERIN [Concomitant]
     Active Substance: NITROGLYCERIN
     Dosage: ADMINISTER ONE DOSE UNDER THE TONGUE WHEN REQUI...
     Route: 060
     Dates: start: 20240108
  13. IBUPROFEN [Concomitant]
     Active Substance: IBUPROFEN
     Dosage: APPLY 3-4 TIMES/DAY WHEN REQUIRED
     Dates: start: 20221111
  14. LANSOPRAZOLE [Concomitant]
     Active Substance: LANSOPRAZOLE
     Dates: start: 20240125
  15. POLYETHYLENE GLYCOL 3350\POTASSIUM CHLORIDE\SODIUM BICARBONATE\SODIUM [Concomitant]
     Active Substance: POLYETHYLENE GLYCOL 3350\POTASSIUM CHLORIDE\SODIUM BICARBONATE\SODIUM CHLORIDE
     Dosage: TAKE ONE OR TWO SACHETS TWICE DAILY WHEN REQUIRED
     Dates: start: 20160818
  16. LEVOTHYROXINE [Concomitant]
     Active Substance: LEVOTHYROXINE\LEVOTHYROXINE SODIUM
     Dosage: MORNING BEFORE FOOD
     Dates: start: 20100218
  17. QUININE BISULFATE [Concomitant]
     Active Substance: QUININE BISULFATE
     Dosage: AT NIGHT
     Dates: start: 20210917
  18. SODIUM PHOSPHATE, MONOBASIC, ANHYDROUS [Concomitant]
     Active Substance: SODIUM PHOSPHATE, MONOBASIC, ANHYDROUS
     Dosage: INSERT AS DIRECTED BY LIVING CARE LEAFLET
     Dates: start: 20240202, end: 20240203

REACTIONS (3)
  - Oedema peripheral [Recovering/Resolving]
  - Peripheral swelling [Unknown]
  - Joint swelling [Unknown]

NARRATIVE: CASE EVENT DATE: 20240108
